FAERS Safety Report 11579804 (Version 1)
Quarter: 2015Q3

REPORT INFORMATION
  Report Type: Spontaneous
  Country: US (occurrence: US)
  Receive Date: 20150916
  Receipt Date: 20150916
  Transmission Date: 20151125
  Serious: No
  Sender: FDA-Public Use
  Company Number: US-ELI_LILLY_AND_COMPANY-US200805002321

PATIENT
  Age: 80 Year
  Sex: Female

DRUGS (7)
  1. TYLENOL ARTHRITIS PAIN [Concomitant]
     Active Substance: ACETAMINOPHEN
     Indication: OSTEOARTHRITIS
  2. MULTIVITAMIN [Concomitant]
     Active Substance: VITAMINS
  3. FORTEO [Suspect]
     Active Substance: TERIPARATIDE
     Dosage: UNK, UNK
     Dates: start: 20070427, end: 20080310
  4. SYNTHROID [Concomitant]
     Active Substance: LEVOTHYROXINE SODIUM
     Indication: HYPOTHYROIDISM
     Dosage: 0.075 MG, UNK
  5. CITRICAL [Concomitant]
     Active Substance: CALCIUM CITRATE
  6. SYNTHROID [Concomitant]
     Active Substance: LEVOTHYROXINE SODIUM
     Dosage: 0.05 MG, 3/D
     Dates: start: 20071127
  7. DARVOCET-N 100 [Concomitant]
     Active Substance: ACETAMINOPHEN\PROPOXYPHENE NAPSYLATE
     Indication: PAIN

REACTIONS (20)
  - Muscle spasms [Unknown]
  - Neck pain [Recovering/Resolving]
  - Restlessness [Recovering/Resolving]
  - Feeling jittery [Unknown]
  - Fatigue [Unknown]
  - Bone pain [Unknown]
  - Vitamin D decreased [Unknown]
  - Memory impairment [Unknown]
  - Eustachian tube dysfunction [Unknown]
  - Dizziness [Unknown]
  - Depression [Unknown]
  - Anxiety [Unknown]
  - Diarrhoea [Unknown]
  - Insomnia [Unknown]
  - Dysarthria [Unknown]
  - Abdominal discomfort [Unknown]
  - Nausea [Unknown]
  - Nervousness [Unknown]
  - Salivary hypersecretion [Unknown]
  - Blood thyroid stimulating hormone increased [Unknown]

NARRATIVE: CASE EVENT DATE: 2007
